FAERS Safety Report 24880466 (Version 1)
Quarter: 2025Q1

REPORT INFORMATION
  Report Type: Spontaneous
  Country: DE (occurrence: DE)
  Receive Date: 20250123
  Receipt Date: 20250123
  Transmission Date: 20250408
  Serious: Yes (Other)
  Sender: TEVA
  Company Number: DE-TEVA-VS-3283321

PATIENT
  Age: 18 Year
  Sex: Female
  Weight: 83 kg

DRUGS (4)
  1. LAMOTRIGINE [Interacting]
     Active Substance: LAMOTRIGINE
     Indication: Seizure
     Dosage: DOSAGE TEXT: UNIT DOSE :400 MG ,200 MILLIGRAM,BID  THERAPY START DATE :ASKU, THERAPY END DATE :ASKU
     Route: 065
  2. ETHINYL ESTRADIOL\LEVONORGESTREL [Interacting]
     Active Substance: ETHINYL ESTRADIOL\LEVONORGESTREL
     Indication: Heavy menstrual bleeding
     Route: 065
  3. DIENOGEST\ETHINYL ESTRADIOL [Suspect]
     Active Substance: DIENOGEST\ETHINYL ESTRADIOL
     Indication: Heavy menstrual bleeding
     Dosage: DOSAGE TEXT: THERAPY START AND END DATE: ASKU
     Route: 048
  4. ETHOSUXIMIDE [Concomitant]
     Active Substance: ETHOSUXIMIDE
     Dosage: DOSAGE TEXT: THERAPY START DATE :ASKU
     Route: 065

REACTIONS (7)
  - Epilepsy [Not Recovered/Not Resolved]
  - Drug interaction [Not Recovered/Not Resolved]
  - Intermenstrual bleeding [Not Recovered/Not Resolved]
  - Off label use [Unknown]
  - Hormone level abnormal [Not Recovered/Not Resolved]
  - Product use in unapproved indication [Unknown]
  - Intentional product use issue [Unknown]

NARRATIVE: CASE EVENT DATE: 20200801
